FAERS Safety Report 15576510 (Version 1)
Quarter: 2018Q4

REPORT INFORMATION
  Report Type: Spontaneous
  Country: GB (occurrence: GB)
  Receive Date: 20181101
  Receipt Date: 20181101
  Transmission Date: 20190205
  Serious: Yes (Hospitalization)
  Sender: FDA-Public Use
  Company Number: GB-PFIZER INC-2018441202

PATIENT
  Age: 58 Year
  Sex: Female
  Weight: 94.34 kg

DRUGS (3)
  1. ELLESTE-SOLO [Concomitant]
     Dosage: UNK
  2. GABAPENTIN. [Suspect]
     Active Substance: GABAPENTIN
     Indication: MULTIPLE SCLEROSIS
     Dosage: 600 MG, UNK
     Route: 048
     Dates: start: 201703
  3. METFORMIN HYDROCHLORIDE. [Concomitant]
     Active Substance: METFORMIN HYDROCHLORIDE
     Dosage: UNK

REACTIONS (8)
  - Insomnia [Recovered/Resolved]
  - Dizziness [Unknown]
  - Feeling abnormal [Unknown]
  - Hallucination [Unknown]
  - Abnormal behaviour [Unknown]
  - Drug ineffective [Unknown]
  - Mania [Unknown]
  - Withdrawal syndrome [Unknown]

NARRATIVE: CASE EVENT DATE: 20180713
